FAERS Safety Report 5662680-2 (Version None)
Quarter: 2008Q1

REPORT INFORMATION
  Report Type: 
  Country: None (occurrence: None)
  Receive Date: 20080313
  Receipt Date: 20080305
  Transmission Date: 20080703
  Serious: Yes (Hospitalization)
  Sender: FDA-Public Use
  Company Number: US-TEVA-168536USA

PATIENT
  Age: 78 Year
  Sex: Female

DRUGS (7)
  1. TRIMETHOPRIM 100 MG TABLETS [Interacting]
     Indication: PROPHYLAXIS URINARY TRACT INFECTION
     Route: 048
  2. MEMANTINE HCL [Suspect]
     Indication: DEMENTIA ALZHEIMER'S TYPE
  3. BACTRIM [Suspect]
     Indication: URINARY TRACT INFECTION
     Dosage: 160MG/80 MG
  4. DONEPEZIL HCL [Concomitant]
  5. PAROXETINE HCL [Concomitant]
  6. PRINZIDE [Concomitant]
  7. ATORVASTATIN CALCIUM [Concomitant]

REACTIONS (3)
  - DELIRIUM [None]
  - DRUG INTERACTION [None]
  - MYOCLONUS [None]
